FAERS Safety Report 9693999 (Version 2)
Quarter: 2014Q1

REPORT INFORMATION
  Report Type: Spontaneous
  Country: BE (occurrence: BE)
  Receive Date: 20131118
  Receipt Date: 20140128
  Transmission Date: 20141002
  Serious: Yes (Other)
  Sender: FDA-Public Use
  Company Number: BE-BAXTER-2013BAX044486

PATIENT
  Sex: Female

DRUGS (1)
  1. TISSUCOL DUO 500 - COLLE DE FIBRINE CONGEL?E ? DEUX COMPOSANTS [Suspect]
     Indication: FACE LIFT
     Dates: start: 201311, end: 201311

REACTIONS (2)
  - Drug ineffective [Recovered/Resolved]
  - No adverse event [Recovered/Resolved]
